FAERS Safety Report 5080966-X (Version None)
Quarter: 2006Q3

REPORT INFORMATION
  Report Type: 
  Country: None (occurrence: None)
  Receive Date: 20060810
  Receipt Date: 20060803
  Transmission Date: 20061208
  Serious: Yes (Death)
  Sender: FDA-Public Use
  Company Number: S06-FRA-03073-01

PATIENT
  Age: 55 Year
  Sex: Male

DRUGS (8)
  1. SEROPLEX (ESCITALOPRAM) [Suspect]
     Dosage: 10 MG QD PO
     Route: 048
     Dates: start: 20060529, end: 20060617
  2. STAGID (METFORMIN EMBONATE) [Suspect]
     Dates: end: 20060617
  3. TRANDATE [Suspect]
     Dates: end: 20060617
  4. ZOCOR [Suspect]
     Dosage: 40 MG QD PO
     Route: 048
     Dates: end: 20060617
  5. VALSARTAN [Suspect]
     Dosage: 80 MG QD PO
     Route: 048
     Dates: end: 20060617
  6. PLAVIX [Suspect]
     Dosage: 75 MG QD PO
     Route: 048
     Dates: end: 20060617
  7. ASPIRIN [Suspect]
  8. REPAGLINIDE [Suspect]

REACTIONS (5)
  - CARDIAC ARREST [None]
  - FATIGUE [None]
  - MYOCARDIAL ISCHAEMIA [None]
  - PRODUCTIVE COUGH [None]
  - SUDDEN DEATH [None]
